FAERS Safety Report 5557351-7 (Version None)
Quarter: 2007Q4

REPORT INFORMATION
  Report Type: 
  Country: None (occurrence: None)
  Receive Date: 20071214
  Receipt Date: 20071203
  Transmission Date: 20080405
  Serious: Yes (Other)
  Sender: FDA-Public Use
  Company Number: US-ROCHE-510120

PATIENT
  Age: 52 Year
  Sex: Male

DRUGS (4)
  1. PEGASYS [Suspect]
     Route: 065
     Dates: start: 20070617
  2. COPEGUS [Suspect]
     Route: 065
     Dates: start: 20070617
  3. COPEGUS [Suspect]
     Route: 065
  4. COPEGUS [Suspect]
     Route: 065

REACTIONS (10)
  - ANGINA PECTORIS [None]
  - ERECTILE DYSFUNCTION [None]
  - FATIGUE [None]
  - GRAND MAL CONVULSION [None]
  - HAEMOLYTIC ANAEMIA [None]
  - INSOMNIA [None]
  - IRRITABILITY [None]
  - MUSCLE ATROPHY [None]
  - NAUSEA [None]
  - NERVOUSNESS [None]
